FAERS Safety Report 7649055-1 (Version None)
Quarter: 2011Q3

REPORT INFORMATION
  Report Type: 
  Country: None (occurrence: None)
  Receive Date: 20110726
  Receipt Date: 20110712
  Transmission Date: 20111222
  Serious: Yes (Other)
  Sender: FDA-Public Use
  Company Number: FK201101373

PATIENT
  Age: 28 Year
  Sex: Female

DRUGS (3)
  1. ANTHRACYCLINES (ANTHRACYCLINES) (ANTHRACYCLINES) [Suspect]
     Indication: TERATOMA
  2. VINCRISTINE [Suspect]
     Indication: TERATOMA
  3. CISPLATIN [Suspect]
     Indication: TERATOMA

REACTIONS (7)
  - CARDIAC FAILURE [None]
  - RIGHT ATRIAL DILATATION [None]
  - HEART TRANSPLANT [None]
  - RESTRICTIVE CARDIOMYOPATHY [None]
  - PULMONARY CALCIFICATION [None]
  - DILATATION VENTRICULAR [None]
  - MYOCARDIAL CALCIFICATION [None]
